FAERS Safety Report 7865568-1 (Version None)
Quarter: 2011Q4

REPORT INFORMATION
  Report Type: 
  Country: None (occurrence: None)
  Receive Date: 20111028
  Receipt Date: 20110118
  Transmission Date: 20120403
  Serious: No
  Sender: FDA-Public Use
  Company Number: US-GLAXOSMITHKLINE-A0906904A

PATIENT
  Age: 73 Year
  Sex: Female

DRUGS (9)
  1. ADVAIR DISKUS 100/50 [Suspect]
     Indication: LUNG INFECTION
     Dosage: 1PUFF TWICE PER DAY
     Route: 055
     Dates: start: 20110117
  2. ESTRADIOL [Concomitant]
  3. METFORMIN HCL [Concomitant]
  4. GABAPENTIN [Concomitant]
  5. DIOVAN [Concomitant]
  6. OMEPRAZOLE [Concomitant]
  7. CALCIUM CARBONATE [Concomitant]
  8. GLIPIZIDE [Concomitant]
  9. SIMVASTATIN [Concomitant]

REACTIONS (2)
  - DIZZINESS [None]
  - TREMOR [None]
